FAERS Safety Report 7805317-6 (Version None)
Quarter: 2011Q4

REPORT INFORMATION
  Report Type: 
  Country: None (occurrence: None)
  Receive Date: 20111010
  Receipt Date: 20111003
  Transmission Date: 20120403
  Serious: Yes (Life-Threatening, Hospitalization)
  Sender: FDA-Public Use
  Company Number: US-GILEAD-2011-0044664

PATIENT

DRUGS (3)
  1. TYVASO [Concomitant]
  2. LETAIRIS [Suspect]
     Indication: PULMONARY HYPERTENSION
     Dosage: 10 MG, UNK
     Route: 048
     Dates: start: 20110726
  3. REVATIO [Concomitant]

REACTIONS (2)
  - UNEVALUABLE EVENT [None]
  - PULMONARY HYPERTENSION [None]
